FAERS Safety Report 9252874 (Version 1)
Quarter: 2013Q2

REPORT INFORMATION
  Report Type: Spontaneous
  Country: US (occurrence: US)
  Receive Date: 20130424
  Receipt Date: 20130424
  Transmission Date: 20140414
  Serious: Yes (Other)
  Sender: FDA-Public Use
  Company Number: US-PFIZER INC-2013124140

PATIENT
  Age: 54 Year
  Sex: Female

DRUGS (1)
  1. SULFASALAZINE [Suspect]
     Indication: ANTIINFLAMMATORY THERAPY
     Dosage: 500 MG, 2X/DAY
     Dates: start: 2011

REACTIONS (2)
  - Post procedural haemorrhage [Unknown]
  - Breast disorder female [Unknown]
